FAERS Safety Report 19308633 (Version 1)
Quarter: 2021Q2

REPORT INFORMATION
  Report Type: Spontaneous
  Country: CH (occurrence: CH)
  Receive Date: 20210526
  Receipt Date: 20210526
  Transmission Date: 20210717
  Serious: Yes (Death, Life-Threatening, Hospitalization, Other)
  Sender: FDA-Public Use
  Company Number: CH-MACLEODS PHARMACEUTICALS US LTD-MAC2021031243

PATIENT

DRUGS (9)
  1. NIMODIPINE. [Suspect]
     Active Substance: NIMODIPINE
     Dosage: UNK
     Route: 013
  2. VENLAFAXINE [Suspect]
     Active Substance: VENLAFAXINE HYDROCHLORIDE
     Indication: BIPOLAR DISORDER
     Dosage: UNK
     Route: 065
  3. TUAMINOHEPTANE [Suspect]
     Active Substance: TUAMINOHEPTANE
     Indication: PRODUCT USED FOR UNKNOWN INDICATION
     Dosage: UNK
     Route: 045
  4. BUPRENORPHINE. [Concomitant]
     Active Substance: BUPRENORPHINE
     Indication: DRUG WITHDRAWAL MAINTENANCE THERAPY
     Dosage: UNK
     Route: 065
  5. NOREPINEPHRINE. [Suspect]
     Active Substance: NOREPINEPHRINE
     Indication: MEAN ARTERIAL PRESSURE DECREASED
     Dosage: UNK
     Route: 065
  6. ARIPIPRAZOLE. [Suspect]
     Active Substance: ARIPIPRAZOLE
     Indication: BIPOLAR DISORDER
     Dosage: UNK
     Route: 065
  7. NIMODIPINE. [Suspect]
     Active Substance: NIMODIPINE
     Dosage: 30 MILLIGRAM, TID, EVERY 8 HOURS
     Route: 048
  8. NIMODIPINE. [Suspect]
     Active Substance: NIMODIPINE
     Indication: REVERSIBLE CEREBRAL VASOCONSTRICTION SYNDROME
     Dosage: 60 MILLIGRAM, QID, EVERY 4 HOURS
     Route: 065
  9. NIMODIPINE. [Suspect]
     Active Substance: NIMODIPINE
     Dosage: UNK
     Route: 042

REACTIONS (8)
  - Ischaemic stroke [Fatal]
  - Subarachnoid haemorrhage [Fatal]
  - Brain herniation [Fatal]
  - Coma [Fatal]
  - Haemorrhagic stroke [Fatal]
  - Reversible cerebral vasoconstriction syndrome [Fatal]
  - Brain oedema [Fatal]
  - Condition aggravated [Fatal]
